FAERS Safety Report 7710996-8 (Version None)
Quarter: 2011Q3

REPORT INFORMATION
  Report Type: 
  Country: None (occurrence: None)
  Receive Date: 20110825
  Receipt Date: 20110816
  Transmission Date: 20111222
  Serious: Yes (Other)
  Sender: FDA-Public Use
  Company Number: US-ASTRAZENECA-2011SE48944

PATIENT
  Age: 38 Year
  Sex: Female
  Weight: 81.2 kg

DRUGS (5)
  1. ARTHROTEC [Suspect]
     Indication: OSTEOARTHRITIS
     Route: 048
     Dates: start: 20060101, end: 20110623
  2. NAPROXEN [Suspect]
     Indication: OSTEOARTHRITIS
     Route: 065
     Dates: start: 20110601, end: 20110701
  3. VIVELLE [Concomitant]
  4. NEXIUM [Suspect]
     Indication: OSTEOARTHRITIS
     Route: 048
     Dates: start: 20110601, end: 20110701
  5. ARTHROTEC [Suspect]
     Route: 048
     Dates: start: 20110705

REACTIONS (4)
  - OFF LABEL USE [None]
  - COAGULATION TEST ABNORMAL [None]
  - INCREASED TENDENCY TO BRUISE [None]
  - DRUG INEFFECTIVE FOR UNAPPROVED INDICATION [None]
